FAERS Safety Report 4540147-2 (Version None)
Quarter: 2004Q4

REPORT INFORMATION
  Report Type: 
  Country: None (occurrence: None)
  Receive Date: 20041228
  Receipt Date: 20041007
  Transmission Date: 20050328
  Serious: Yes (Life-Threatening)
  Sender: FDA-Public Use
  Company Number: US-MERCK-0410USA01195

PATIENT
  Age: 63 Year
  Sex: Female

DRUGS (10)
  1. VIOXX [Suspect]
     Indication: ARTHRITIS
     Route: 048
     Dates: start: 20010910, end: 20040930
  2. FOLIC ACID [Concomitant]
     Route: 065
  3. NEXIUM [Concomitant]
     Route: 065
  4. FOSAMAX [Concomitant]
     Route: 065
  5. HYDRO-CHLOR [Concomitant]
     Route: 065
  6. [THERAPY UNSPECIFIED] [Concomitant]
     Route: 065
  7. PRILOSEC [Concomitant]
     Route: 065
  8. DARVOCET-N 100 [Concomitant]
     Route: 065
     Dates: start: 19950101
  9. PLAQUENIL [Concomitant]
     Route: 065
  10. METHOTREXATE [Concomitant]
     Route: 065

REACTIONS (4)
  - CHEST PAIN [None]
  - HEART VALVE STENOSIS [None]
  - LUMBAR RADICULOPATHY [None]
  - RADICULOPATHY [None]
